FAERS Safety Report 24334546 (Version 3)
Quarter: 2025Q2

REPORT INFORMATION
  Report Type: Report from Study
  Country: IN (occurrence: IN)
  Receive Date: 20240918
  Receipt Date: 20250408
  Transmission Date: 20250716
  Serious: Yes (Hospitalization)
  Sender: NOVARTIS
  Company Number: IN-002147023-NVSC2024IN184245

PATIENT
  Sex: Male

DRUGS (2)
  1. CYCLOSPORINE [Suspect]
     Active Substance: CYCLOSPORINE
     Indication: Bone marrow transplant
     Dosage: 0.7 ML, BID (SYRUP)
     Route: 048
  2. CYCLOSPORINE [Suspect]
     Active Substance: CYCLOSPORINE
     Dosage: 0.9 ML, BID
     Route: 048

REACTIONS (4)
  - Pneumonia fungal [Unknown]
  - Toxicity to various agents [Unknown]
  - Blood creatinine increased [Unknown]
  - Decreased appetite [Unknown]
